FAERS Safety Report 5919552-5 (Version None)
Quarter: 2008Q4

REPORT INFORMATION
  Report Type: 
  Country: None (occurrence: None)
  Receive Date: 20081015
  Receipt Date: 20070918
  Transmission Date: 20090506
  Serious: No
  Sender: FDA-Public Use
  Company Number: US-BRISTOL-MYERS SQUIBB COMPANY-13912340

PATIENT
  Sex: Female

DRUGS (1)
  1. KENALOG-40 [Suspect]

REACTIONS (4)
  - FEELING HOT [None]
  - FLUID RETENTION [None]
  - PRURITUS [None]
  - RASH [None]
